FAERS Safety Report 16968041 (Version 1)
Quarter: 2019Q4

REPORT INFORMATION
  Report Type: Spontaneous
  Country: IN (occurrence: IN)
  Receive Date: 20191028
  Receipt Date: 20191028
  Transmission Date: 20200122
  Serious: Yes (Death, Other)
  Sender: FDA-Public Use
  Company Number: IN-ALLERGAN-1942946US

PATIENT

DRUGS (3)
  1. CEFTAZIDIME;AVIBACTAM - BP [Suspect]
     Active Substance: AVIBACTAM SODIUM\CEFTAZIDIME
     Indication: LIVER TRANSPLANT
     Route: 065
  2. AZTREONAM. [Suspect]
     Active Substance: AZTREONAM
     Indication: LIVER TRANSPLANT
     Route: 065
  3. COLISTIN [Suspect]
     Active Substance: COLISTIN
     Indication: LIVER TRANSPLANT
     Route: 065

REACTIONS (2)
  - Death [Fatal]
  - Trichosporon infection [Unknown]
